FAERS Safety Report 25535959 (Version 2)
Quarter: 2025Q3

REPORT INFORMATION
  Report Type: Spontaneous
  Country: EU (occurrence: EU)
  Receive Date: 20250709
  Receipt Date: 20250717
  Transmission Date: 20251020
  Serious: Yes (Other)
  Sender: INCYTE
  Company Number: EU-002147023-NVSC2023DE269788

PATIENT

DRUGS (4)
  1. RUXOLITINIB [Suspect]
     Active Substance: RUXOLITINIB
     Indication: Essential thrombocythaemia
     Route: 065
  2. RUXOLITINIB [Suspect]
     Active Substance: RUXOLITINIB
     Dosage: 5 MG, BID
     Route: 065
  3. HYDROXYUREA [Suspect]
     Active Substance: HYDROXYUREA
     Indication: Essential thrombocythaemia
     Route: 065
  4. ANAGRELIDE [Suspect]
     Active Substance: ANAGRELIDE
     Indication: Essential thrombocythaemia
     Route: 065

REACTIONS (5)
  - Anaemia [Unknown]
  - COVID-19 [Recovered/Resolved]
  - Dyspnoea [Unknown]
  - Listless [Unknown]
  - Fatigue [Unknown]
